FAERS Safety Report 4571135-8 (Version None)
Quarter: 2005Q1

REPORT INFORMATION
  Report Type: 
  Country: None (occurrence: None)
  Receive Date: 20050202
  Receipt Date: 20050120
  Transmission Date: 20050727
  Serious: Yes (Other)
  Sender: FDA-Public Use
  Company Number: 2003188729BR

PATIENT
  Age: 74 Year
  Sex: Female

DRUGS (4)
  1. XALATAN [Suspect]
     Indication: GLAUCOMA
     Dosage: 1 GTT (QD), OPHTHALMIC
     Route: 047
     Dates: start: 19980101
  2. TIMOLOL MALEATE [Concomitant]
  3. BRINZOLAMIDE (BRINZOLAMIDE) [Concomitant]
  4. BRIMONIDINE TARTRATE (BRIMONIDINE TARTRATE) [Concomitant]

REACTIONS (7)
  - ANXIETY [None]
  - ARRHYTHMIA [None]
  - DIZZINESS [None]
  - DRUG INEFFECTIVE [None]
  - EYE OEDEMA [None]
  - GASTRITIS [None]
  - OCULAR HYPERAEMIA [None]
